FAERS Safety Report 15840530 (Version 2)
Quarter: 2019Q1

REPORT INFORMATION
  Report Type: Spontaneous
  Country: US (occurrence: US)
  Receive Date: 20190118
  Receipt Date: 20190124
  Transmission Date: 20190417
  Serious: Yes (Other)
  Sender: FDA-Public Use
  Company Number: US-ASTRAZENECA-2018SF70587

PATIENT
  Age: 63 Year
  Sex: Male
  Weight: 150 kg

DRUGS (2)
  1. ONGLYZA [Suspect]
     Active Substance: SAXAGLIPTIN HYDROCHLORIDE
     Indication: TYPE 2 DIABETES MELLITUS
     Route: 048
     Dates: start: 2015, end: 2018
  2. METFORMIN [Concomitant]
     Active Substance: METFORMIN HYDROCHLORIDE

REACTIONS (7)
  - Loose tooth [Unknown]
  - Gingival swelling [Recovering/Resolving]
  - Adverse drug reaction [Unknown]
  - Osteomyelitis [Unknown]
  - Tooth loss [Unknown]
  - Tooth infection [Unknown]
  - Hypophagia [Unknown]
